FAERS Safety Report 17060880 (Version 1)
Quarter: 2019Q4

REPORT INFORMATION
  Report Type: Spontaneous
  Country: IL (occurrence: IL)
  Receive Date: 20191121
  Receipt Date: 20191121
  Transmission Date: 20200122
  Serious: Yes (Hospitalization, Other)
  Sender: FDA-Public Use
  Company Number: IL-TEVA-2019-IL-1140902

PATIENT
  Age: 50 Year
  Sex: Female

DRUGS (2)
  1. RITALIN [Concomitant]
     Active Substance: METHYLPHENIDATE HYDROCHLORIDE
     Route: 065
  2. CLONEX (CLONAZEPAM) [Suspect]
     Active Substance: CLONAZEPAM
     Dosage: AT FIRST ONE UNIT IN THE EVENING AND WITHIN A FEW MONTHS I ALREADY NEEDED FIVE UNITS
     Route: 065

REACTIONS (8)
  - Syncope [Unknown]
  - Feeling abnormal [Unknown]
  - Emotional disorder [Unknown]
  - Off label use [Unknown]
  - Depressed mood [Unknown]
  - Intentional product misuse [Unknown]
  - Mental disorder [Unknown]
  - Product use in unapproved indication [Unknown]
